FAERS Safety Report 12707502 (Version 1)
Quarter: 2016Q3

REPORT INFORMATION
  Report Type: Spontaneous
  Country: US (occurrence: US)
  Receive Date: 20160901
  Receipt Date: 20160901
  Transmission Date: 20161109
  Serious: No
  Sender: FDA-Public Use
  Company Number: US-ASTRAZENECA-2016SE66381

PATIENT
  Sex: Female

DRUGS (2)
  1. NOVOCAINE-ADRENALINE [Suspect]
     Active Substance: EPINEPHRINE\PROCAINE
     Route: 065
  2. NEXIUM [Suspect]
     Active Substance: ESOMEPRAZOLE MAGNESIUM
     Route: 048

REACTIONS (1)
  - Drug hypersensitivity [Unknown]
